FAERS Safety Report 9283143 (Version 1)
Quarter: 2013Q2

REPORT INFORMATION
  Report Type: Spontaneous
  Country: FR (occurrence: FR)
  Receive Date: 20130510
  Receipt Date: 20130510
  Transmission Date: 20140414
  Serious: Yes (Death, Other)
  Sender: FDA-Public Use
  Company Number: FR-CELGENEUS-056-50794-13050181

PATIENT
  Sex: 0

DRUGS (1)
  1. VIDAZA [Suspect]
     Indication: ACUTE MYELOID LEUKAEMIA
     Dosage: 75 MILLIGRAM/SQ. METER
     Route: 058
     Dates: start: 2007, end: 2011

REACTIONS (9)
  - Death [Fatal]
  - Haematotoxicity [Unknown]
  - Sepsis [Unknown]
  - Septic shock [Unknown]
  - Bronchopulmonary aspergillosis [Unknown]
  - Lung disorder [Unknown]
  - Cellulitis [Unknown]
  - Abscess [Unknown]
  - Acute myeloid leukaemia [Unknown]
